FAERS Safety Report 7031038-6 (Version None)
Quarter: 2010Q4

REPORT INFORMATION
  Report Type: 
  Country: None (occurrence: None)
  Receive Date: 20101006
  Receipt Date: 20100916
  Transmission Date: 20110411
  Serious: Yes (Other)
  Sender: FDA-Public Use
  Company Number: US-BAYER-201031786NA

PATIENT
  Sex: Female

DRUGS (2)
  1. BETAPACE [Suspect]
     Indication: HEART RATE ABNORMAL
  2. BETAPACE [Suspect]

REACTIONS (2)
  - EXTRASYSTOLES [None]
  - PALPITATIONS [None]
